FAERS Safety Report 19454402 (Version 2)
Quarter: 2021Q3

REPORT INFORMATION
  Report Type: Report from Study
  Country: US (occurrence: US)
  Receive Date: 20210623
  Receipt Date: 20210921
  Transmission Date: 20211014
  Serious: Yes (Hospitalization)
  Sender: FDA-Public Use
  Company Number: US-EXELIXIS-CABO-21040541

PATIENT
  Age: 39 Year
  Sex: Male
  Weight: 91.69 kg

DRUGS (2)
  1. CABOMETYX [Suspect]
     Active Substance: CABOZANTINIB S-MALATE
     Indication: RENAL CANCER
     Dosage: 40 MG, QD (2 TABLETS OF 20 MG BY MOUTH ONCE DAILY)
     Route: 048
     Dates: start: 20210429
  2. CABOMETYX [Suspect]
     Active Substance: CABOZANTINIB S-MALATE
     Dosage: 40 MG, (ONE TABLET OF 20 MG TWICE DAILY(20MG IN AM AND 20MG IN PM))
     Route: 048

REACTIONS (6)
  - Migraine [Unknown]
  - Haematochezia [Unknown]
  - Diarrhoea [Unknown]
  - Infection [Recovered/Resolved]
  - Rash [Unknown]
  - Product prescribing error [Unknown]

NARRATIVE: CASE EVENT DATE: 20210514
